FAERS Safety Report 22023230 (Version 1)
Quarter: 2023Q1

REPORT INFORMATION
  Report Type: Spontaneous
  Country: TW (occurrence: TW)
  Receive Date: 20230223
  Receipt Date: 20230223
  Transmission Date: 20230417
  Serious: Yes (Death, Other)
  Sender: FDA-Public Use
  Company Number: TW-SNT-000360

PATIENT
  Age: 83 Year
  Sex: Female

DRUGS (4)
  1. POSACONAZOLE [Suspect]
     Active Substance: POSACONAZOLE
     Indication: Product use in unapproved indication
     Dosage: 300 MILLIGRAM TABLET ORALLY PER DAY.
     Route: 048
  2. AMPHOTERICIN B [Concomitant]
     Active Substance: AMPHOTERICIN B
     Indication: Pulmonary histoplasmosis
     Dosage: 3 MILLIGRAM PER KILOGRAM PER DAY
     Route: 065
  3. ITRACONAZOLE [Concomitant]
     Active Substance: ITRACONAZOLE
     Indication: Pulmonary histoplasmosis
     Dosage: 200 MILLIGRAM CAPSULE TWICE PER DAY
     Route: 048
  4. AMPHOTERICIN B [Concomitant]
     Active Substance: AMPHOTERICIN B
     Indication: Pulmonary histoplasmosis
     Route: 065

REACTIONS (4)
  - Death [Fatal]
  - Off label use [Unknown]
  - Disease progression [Unknown]
  - Pleural effusion [Recovered/Resolved]
